FAERS Safety Report 4936244-X (Version None)
Quarter: 2006Q1

REPORT INFORMATION
  Report Type: 
  Country: None (occurrence: None)
  Receive Date: 20060307
  Receipt Date: 20060103
  Transmission Date: 20060701
  Serious: Yes (Hospitalization)
  Sender: FDA-Public Use
  Company Number: US-GLAXOSMITHKLINE-A0587536A

PATIENT
  Age: 65 Year
  Sex: Male

DRUGS (5)
  1. REQUIP [Suspect]
     Indication: RESTLESS LEGS SYNDROME
     Route: 048
     Dates: start: 20051121, end: 20051218
  2. ADVAIR DISKUS 100/50 [Concomitant]
  3. ATIVAN [Concomitant]
  4. TRIAMTERENE AND HYDROCHLOROTHIAZIDE [Concomitant]
  5. LUNESTA [Concomitant]

REACTIONS (1)
  - CHEST DISCOMFORT [None]
